FAERS Safety Report 6262967-9 (Version None)
Quarter: 2009Q3

REPORT INFORMATION
  Report Type: 
  Country: None (occurrence: None)
  Receive Date: 20090710
  Receipt Date: 20090629
  Transmission Date: 20100115
  Serious: Yes (Other)
  Sender: FDA-Public Use
  Company Number: US-JNJCH-2009017976

PATIENT
  Age: 73 Year
  Sex: Female
  Weight: 90.7 kg

DRUGS (3)
  1. BENADRYL [Suspect]
     Indication: HYPERSENSITIVITY
     Dosage: TEXT:50ML EVERY FIVE HOURS FOR 48HOURS
     Route: 042
     Dates: start: 20090306, end: 20090308
  2. AMITIZA [Suspect]
     Indication: CONSTIPATION
     Dosage: TEXT:UNSPECIFIED
     Route: 065
  3. LAMICTAL [Concomitant]
     Indication: ANTIDEPRESSANT THERAPY
     Dosage: TEXT:UNSPECIFIED
     Route: 065

REACTIONS (5)
  - PAIN [None]
  - PRURITUS [None]
  - PSYCHOTIC DISORDER [None]
  - SENSORY DISTURBANCE [None]
  - SWELLING [None]
